FAERS Safety Report 12535646 (Version 1)
Quarter: 2016Q3

REPORT INFORMATION
  Report Type: Other
  Country: KE (occurrence: KE)
  Receive Date: 20160707
  Receipt Date: 20160707
  Transmission Date: 20161109
  Serious: No
  Sender: FDA-Public Use
  Company Number: KE-LUPIN PHARMACEUTICALS INC.-2016-01643

PATIENT
  Age: 40 Year
  Sex: Female

DRUGS (6)
  1. DOXYCYCLINE. [Suspect]
     Active Substance: DOXYCYCLINE
     Indication: GENITAL HERPES
     Route: 065
  2. STAVUDINE. [Concomitant]
     Active Substance: STAVUDINE
     Indication: HIV INFECTION
     Route: 065
  3. NEVIRAPINE. [Interacting]
     Active Substance: NEVIRAPINE
     Indication: HIV INFECTION
     Route: 065
  4. LAMIVUDINE. [Concomitant]
     Active Substance: LAMIVUDINE
     Indication: HIV INFECTION
     Route: 065
  5. WARFARIN [Interacting]
     Active Substance: WARFARIN
     Route: 065
  6. WARFARIN [Interacting]
     Active Substance: WARFARIN
     Indication: DEEP VEIN THROMBOSIS
     Route: 065

REACTIONS (2)
  - International normalised ratio abnormal [Recovered/Resolved]
  - Drug interaction [Unknown]
